FAERS Safety Report 16474702 (Version 1)
Quarter: 2019Q2

REPORT INFORMATION
  Report Type: Report from Study
  Country: CL (occurrence: CL)
  Receive Date: 20190625
  Receipt Date: 20190625
  Transmission Date: 20190711
  Serious: Yes (Other)
  Sender: FDA-Public Use
  Company Number: CL-UCBSA-2019025697

PATIENT
  Age: 41 Year
  Sex: Female

DRUGS (2)
  1. FLEXONO [Concomitant]
     Active Substance: DIHYDROXYALUMINUM AMINOACETATE ANHYDROUS\INDOMETHACIN
     Indication: PSORIATIC ARTHROPATHY
     Dosage: 1 DOSAGE FORM, 2X/DAY (BID)
  2. CERTOLIZUMAB PEGOL [Suspect]
     Active Substance: CERTOLIZUMAB PEGOL
     Indication: PSORIATIC ARTHROPATHY
     Dosage: 200 MILLIGRAM, EV 2 WEEKS(QOW)
     Route: 058
     Dates: start: 20150507, end: 20190501

REACTIONS (1)
  - Bronchitis [Recovering/Resolving]

NARRATIVE: CASE EVENT DATE: 20190515
